FAERS Safety Report 4903685-6 (Version None)
Quarter: 2006Q1

REPORT INFORMATION
  Report Type: 
  Country: None (occurrence: None)
  Receive Date: 20060208
  Receipt Date: 20051101
  Transmission Date: 20060701
  Serious: Yes (Hospitalization, Other)
  Sender: FDA-Public Use
  Company Number: PHEH2005US12212

PATIENT
  Age: 83 Year
  Sex: Female

DRUGS (5)
  1. ZOMETA [Suspect]
     Indication: MULTIPLE MYELOMA
     Dosage: 4MG Q4WK
     Dates: start: 20030201, end: 20051101
  2. ALKERAN [Concomitant]
     Indication: MULTIPLE MYELOMA
     Dosage: 12MG/D
     Dates: start: 20020801, end: 20031101
  3. ALKERAN [Concomitant]
     Dosage: 12MG/D
     Dates: start: 20050401, end: 20051101
  4. PREDNISONE [Concomitant]
     Dosage: 40MG/D
     Dates: start: 20020801, end: 20031101
  5. PREDNISONE [Concomitant]
     Dosage: 40MG/D
     Dates: start: 20050401, end: 20051101

REACTIONS (14)
  - ABSCESS JAW [None]
  - BONE DISORDER [None]
  - BONE FORMATION INCREASED [None]
  - CEREBROVASCULAR ACCIDENT [None]
  - DEFORMITY [None]
  - GINGIVAL INFECTION [None]
  - GINGIVITIS [None]
  - HYPOAESTHESIA [None]
  - LYMPHADENOPATHY [None]
  - OEDEMA [None]
  - OSTEOPETROSIS [None]
  - PAIN [None]
  - SOFT TISSUE INFECTION [None]
  - TOOTH EXTRACTION [None]
